FAERS Safety Report 8652627 (Version 2)
Quarter: 2012Q4

REPORT INFORMATION
  Report Type: 
  Country: CL (occurrence: CL)
  Receive Date: 20120706
  Receipt Date: 20121005
  Transmission Date: 20130627
  Serious: Yes (Life-Threatening, Hospitalization)
  Sender: FDA-Public Use
  Company Number: CL-CELGENEUS-034-50794-12070054

PATIENT
  Age: 82 Year
  Sex: Female

DRUGS (10)
  1. VIDAZA [Suspect]
     Indication: MDS
     Dosage: 130 Milligram
     Route: 041
     Dates: start: 20120603, end: 20120607
  2. VIDAZA [Suspect]
     Dosage: 120 Milligram
     Route: 041
  3. ACIDO FOLICO [Concomitant]
     Indication: DRUG USE FOR UNKNOWN INDICATION
     Dosage: 5 Milligram
     Route: 048
  4. GRANISETRON [Concomitant]
     Indication: DRUG USE FOR UNKNOWN INDICATION
     Dosage: 3 Milligram
     Route: 041
  5. OMEPRAZOL [Concomitant]
     Indication: DRUG USE FOR UNKNOWN INDICATION
     Dosage: 40 Milligram
     Route: 048
  6. ALOPURINOL [Concomitant]
     Indication: DRUG USE FOR UNKNOWN INDICATION
     Dosage: 300 Milligram
     Route: 065
  7. METOPROLOL [Concomitant]
     Indication: DRUG USE FOR UNKNOWN INDICATION
     Dosage: 50 Milligram
     Route: 065
  8. FUROSEMIDA [Concomitant]
     Indication: DRUG USE FOR UNKNOWN INDICATION
     Dosage: 20 Milligram
     Route: 065
  9. ALBUMINA HUMANA [Concomitant]
     Indication: DRUG USE FOR UNKNOWN INDICATION
     Route: 065
  10. MIDAZOLAM [Concomitant]
     Indication: DRUG USE FOR UNKNOWN INDICATION
     Dosage: 7.5 Milligram
     Route: 048

REACTIONS (3)
  - Extrasystoles [Recovered/Resolved]
  - Ejection fraction decreased [Recovered/Resolved]
  - Cardiomegaly [Recovered/Resolved]
